FAERS Safety Report 24049119 (Version 1)
Quarter: 2024Q3

REPORT INFORMATION
  Report Type: Other
  Country: ES (occurrence: ES)
  Receive Date: 20240704
  Receipt Date: 20240704
  Transmission Date: 20241016
  Serious: Yes (Life-Threatening, Other)
  Sender: ZYDUS PHARM
  Company Number: None

PATIENT

DRUGS (1)
  1. ACETAMINOPHEN [Suspect]
     Active Substance: ACETAMINOPHEN
     Indication: Suicidal ideation
     Dosage: 13 GRAM
     Route: 065
     Dates: start: 20240513, end: 20240513

REACTIONS (3)
  - Coagulopathy [Unknown]
  - Abdominal pain lower [Unknown]
  - Vomiting [Unknown]

NARRATIVE: CASE EVENT DATE: 20240513
